FAERS Safety Report 15493207 (Version 1)
Quarter: 2018Q4

REPORT INFORMATION
  Report Type: Spontaneous
  Country: US (occurrence: US)
  Receive Date: 20181012
  Receipt Date: 20181012
  Transmission Date: 20190205
  Serious: No
  Sender: FDA-Public Use
  Company Number: US-IPSEN BIOPHARMACEUTICALS, INC.-2018-15208

PATIENT
  Age: 64 Year
  Sex: Female

DRUGS (6)
  1. DYSPORT [Suspect]
     Active Substance: ABOBOTULINUMTOXINA
     Indication: SKIN WRINKLING
     Dosage: NOT REPORTED
     Dates: start: 20180316, end: 20180316
  2. DYSPORT [Suspect]
     Active Substance: ABOBOTULINUMTOXINA
     Indication: SKIN WRINKLING
     Dosage: NOT REPORTED
     Dates: start: 20180309, end: 20180309
  3. DYSPORT [Suspect]
     Active Substance: ABOBOTULINUMTOXINA
     Indication: OFF LABEL USE
     Dosage: NOT REPORTED
     Dates: start: 20180316, end: 20180316
  4. ROSACEA DOXY [Concomitant]
  5. RECLAST [Concomitant]
     Active Substance: ZOLEDRONIC ACID
  6. SYMBICORT [Concomitant]
     Active Substance: BUDESONIDE\FORMOTEROL FUMARATE DIHYDRATE

REACTIONS (7)
  - Intentional product use issue [Unknown]
  - Mass [Unknown]
  - Eyelid ptosis [Unknown]
  - Off label use [Unknown]
  - Pain [Unknown]
  - Drug ineffective [Unknown]
  - Swelling [Not Recovered/Not Resolved]

NARRATIVE: CASE EVENT DATE: 201803
